FAERS Safety Report 4718967-0 (Version None)
Quarter: 2005Q3

REPORT INFORMATION
  Report Type: 
  Country: None (occurrence: None)
  Receive Date: 20050720
  Receipt Date: 20050629
  Transmission Date: 20060218
  Serious: Yes (Hospitalization, Other)
  Sender: FDA-Public Use
  Company Number: US_0507119771

PATIENT
  Age: 77 Year
  Sex: Female

DRUGS (4)
  1. CYMBALTA [Suspect]
     Indication: DEPRESSION
     Dosage: 60 MG DAY
     Dates: start: 20050615, end: 20050623
  2. GLUCOFORMIN (METFORMIN HYDROCHLORIDE) [Concomitant]
  3. SIMVASTATIN [Concomitant]
  4. AMLODIPINE W/HYDROCHLOROTHIAZIDE [Concomitant]

REACTIONS (5)
  - CONFUSIONAL STATE [None]
  - ELECTROENCEPHALOGRAM ABNORMAL [None]
  - NAUSEA [None]
  - SOMNOLENCE [None]
  - VOMITING [None]
